FAERS Safety Report 11580166 (Version 1)
Quarter: 2015Q3

REPORT INFORMATION
  Report Type: Report from Study
  Country: US (occurrence: US)
  Receive Date: 20150930
  Receipt Date: 20150930
  Transmission Date: 20151125
  Serious: Yes (Hospitalization)
  Sender: FDA-Public Use
  Company Number: US-ABBVIE-15P-163-1468974-00

PATIENT
  Age: 26 Year
  Sex: Female

DRUGS (7)
  1. TRUVADA [Suspect]
     Active Substance: EMTRICITABINE\TENOFOVIR DISOPROXIL FUMARATE
     Indication: ANTIRETROVIRAL THERAPY
     Dosage: 1 COURSE, NOT PRIOR TO CONCEPTION, FIRST TRIMESTER EARLIEST EXPOSURE
     Route: 048
     Dates: start: 20150603
  2. COCAINE [Concomitant]
     Active Substance: COCAINE
     Indication: PRODUCT USED FOR UNKNOWN INDICATION
     Dosage: SECOND TRIMESTER USE
     Route: 065
  3. RITONAVIR. [Suspect]
     Active Substance: RITONAVIR
     Indication: ANTIRETROVIRAL THERAPY
     Dosage: 1 COURSE, NOT PRIOR TO CONCEPTION, FIRST TRIMESTER EARLIEST EXPOSURE
     Route: 048
     Dates: start: 20150603
  4. METRONIDAZOLE. [Concomitant]
     Active Substance: METRONIDAZOLE
     Indication: PRODUCT USED FOR UNKNOWN INDICATION
     Dosage: SECOND TRIMESTER USE
     Route: 065
  5. BETAMETHASONE. [Concomitant]
     Active Substance: BETAMETHASONE
     Route: 065
     Dates: start: 20150912, end: 20150913
  6. REYATAZ [Suspect]
     Active Substance: ATAZANAVIR SULFATE
     Indication: ANTIRETROVIRAL THERAPY
     Dosage: 1 COURSE, NOT PRIOR TO CONCEPTION, FIRST TRIMESTER EARLIEST EXPOSURE
     Route: 048
     Dates: start: 20150603
  7. BETAMETHASONE. [Concomitant]
     Active Substance: BETAMETHASONE
     Indication: PRODUCT USED FOR UNKNOWN INDICATION
     Dosage: SECOND TRIMESTER USE X 2
     Route: 065

REACTIONS (2)
  - Premature labour [Unknown]
  - Exposure during pregnancy [Unknown]
